FAERS Safety Report 6884378-5 (Version None)
Quarter: 2010Q3

REPORT INFORMATION
  Report Type: 
  Country: None (occurrence: None)
  Receive Date: 20100729
  Receipt Date: 20070710
  Transmission Date: 20110219
  Serious: No
  Sender: FDA-Public Use
  Company Number: US-PFIZER INC-2007055168

PATIENT
  Age: 47 Year
  Sex: Male
  Weight: 84.1 kg

DRUGS (2)
  1. CELEBREX [Suspect]
     Indication: TENDONITIS
     Dates: start: 20070703
  2. ANALGESICS [Concomitant]
     Dates: start: 20070601

REACTIONS (1)
  - DRUG EFFECT DECREASED [None]
